FAERS Safety Report 5688121-7 (Version None)
Quarter: 2008Q1

REPORT INFORMATION
  Report Type: 
  Country: None (occurrence: None)
  Receive Date: 20080327
  Receipt Date: 20080213
  Transmission Date: 20080703
  Serious: Yes (Life-Threatening, Hospitalization, Other)
  Sender: FDA-Public Use
  Company Number: 20084767

PATIENT
  Sex: Male

DRUGS (1)
  1. LIORESAL [Suspect]
     Indication: MUSCLE SPASTICITY
     Dosage: 490 MCG, DAILY, INTRATHECAL
     Route: 037

REACTIONS (3)
  - DRUG TOXICITY [None]
  - RENAL FAILURE [None]
  - SEPSIS [None]
